FAERS Safety Report 12297328 (Version 1)
Quarter: 2016Q2

REPORT INFORMATION
  Report Type: Report from Study
  Country: US (occurrence: US)
  Receive Date: 20160422
  Receipt Date: 20160422
  Transmission Date: 20160815
  Serious: No
  Sender: FDA-Public Use
  Company Number: ADR-2015-01446

PATIENT
  Age: 61 Year
  Sex: Female

DRUGS (1)
  1. COMPOUNDED BACLOFEN [Suspect]
     Active Substance: BACLOFEN
     Dosage: 300MCG/DAY
     Route: 037

REACTIONS (2)
  - Adverse drug reaction [Recovered/Resolved]
  - Dizziness [Recovered/Resolved]
